FAERS Safety Report 20721589 (Version 2)
Quarter: 2024Q4

REPORT INFORMATION
  Report Type: Report from Study
  Country: US (occurrence: US)
  Receive Date: 20220418
  Receipt Date: 20241113
  Transmission Date: 20250114
  Serious: No
  Sender: INCYTE
  Company Number: US-INCYTE CORPORATION-2022IN002495

PATIENT

DRUGS (4)
  1. JAKAFI [Suspect]
     Active Substance: RUXOLITINIB
     Indication: Chronic graft versus host disease
     Dosage: UNK
     Route: 048
  2. JAKAFI [Suspect]
     Active Substance: RUXOLITINIB
     Dosage: 10 MILLIGRAM, BID
     Route: 048
  3. JAKAFI [Suspect]
     Active Substance: RUXOLITINIB
     Dosage: 5 MILLIGRAM, BID
     Route: 048
  4. JAKAFI [Suspect]
     Active Substance: RUXOLITINIB
     Dosage: 5 MILLIGRAM, TAKE 2 TABS IN PO AM AND 1 TAB PO PM
     Route: 048

REACTIONS (3)
  - Haematocrit decreased [Recovered/Resolved]
  - Lethargy [Unknown]
  - Off label use [Unknown]
